FAERS Safety Report 11511490 (Version 1)
Quarter: 2015Q3

REPORT INFORMATION
  Report Type: Spontaneous
  Country: IT (occurrence: IT)
  Receive Date: 20150915
  Receipt Date: 20150915
  Transmission Date: 20151125
  Serious: Yes (Other)
  Sender: FDA-Public Use
  Company Number: IT-GILEAD-2015-0171969

PATIENT
  Age: 53 Year
  Sex: Male
  Weight: 86 kg

DRUGS (1)
  1. EVIPLERA [Suspect]
     Active Substance: EMTRICITABINE\RILPIVIRINE\TENOFOVIR DISOPROXIL FUMARATE
     Indication: ACQUIRED IMMUNODEFICIENCY SYNDROME
     Dosage: 1 DF, QD
     Route: 048
     Dates: start: 20150617, end: 20150910

REACTIONS (1)
  - Subcutaneous abscess [Unknown]

NARRATIVE: CASE EVENT DATE: 20150715
